FAERS Safety Report 7335178-3 (Version None)
Quarter: 2011Q1

REPORT INFORMATION
  Report Type: 
  Country: None (occurrence: None)
  Receive Date: 20110307
  Receipt Date: 20110224
  Transmission Date: 20110831
  Serious: Yes (Hospitalization)
  Sender: FDA-Public Use
  Company Number: US-JNJFOC-20110300136

PATIENT
  Sex: Female
  Weight: 47.63 kg

DRUGS (3)
  1. REMICADE [Suspect]
     Indication: CROHN'S DISEASE
     Route: 042
  2. REMICADE [Suspect]
     Route: 042
  3. MESALAMINE [Concomitant]
     Indication: CROHN'S DISEASE
     Route: 065

REACTIONS (4)
  - DIARRHOEA [None]
  - INTESTINAL STENOSIS [None]
  - CROHN'S DISEASE [None]
  - ABDOMINAL PAIN [None]
